FAERS Safety Report 12262782 (Version 1)
Quarter: 2016Q2

REPORT INFORMATION
  Report Type: Spontaneous
  Country: DE (occurrence: DE)
  Receive Date: 20160413
  Receipt Date: 20160413
  Transmission Date: 20160815
  Serious: Yes (Hospitalization)
  Sender: FDA-Public Use
  Company Number: DE-009507513-1604DEU004867

PATIENT
  Age: 64 Year
  Sex: Male

DRUGS (1)
  1. ATOZET 10 MG/10 MG [Suspect]
     Active Substance: ATORVASTATIN CALCIUM\EZETIMIBE
     Indication: PROPHYLAXIS
     Dosage: UNK
     Route: 048
     Dates: start: 20160317, end: 20160328

REACTIONS (7)
  - Anaemia [Not Recovered/Not Resolved]
  - Leukopenia [Not Recovered/Not Resolved]
  - Thrombocytopenia [Not Recovered/Not Resolved]
  - Splenomegaly [Not Recovered/Not Resolved]
  - C-reactive protein increased [Not Recovered/Not Resolved]
  - Pyrexia [Not Recovered/Not Resolved]
  - Hepatomegaly [Not Recovered/Not Resolved]

NARRATIVE: CASE EVENT DATE: 20160324
